FAERS Safety Report 5134238-5 (Version None)
Quarter: 2006Q4

REPORT INFORMATION
  Report Type: 
  Country: None (occurrence: None)
  Receive Date: 20061019
  Receipt Date: 20061007
  Transmission Date: 20070319
  Serious: Yes (Other)
  Sender: FDA-Public Use
  Company Number: 2006119042

PATIENT
  Age: 82 Year
  Sex: Male
  Weight: 57.1532 kg

DRUGS (21)
  1. LYRICA [Suspect]
     Indication: NEURALGIA
     Dosage: 150 MG (75 MG, 2 IN 1D)
  2. DETROL LA [Suspect]
     Indication: INCONTINENCE
     Dosage: 2 IN 1 D
  3. CELEBREX [Suspect]
     Dosage: (200 MG)
     Dates: start: 20060901
  4. ACIPHEX [Concomitant]
  5. PROZAC [Concomitant]
  6. ATIVAN [Concomitant]
  7. SYNTHROID [Concomitant]
  8. PRANDIN [Concomitant]
  9. LOPRESSOR [Concomitant]
  10. ASPIRIN [Concomitant]
  11. LIPITOR [Concomitant]
  12. ALTACE [Concomitant]
  13. LASIX [Concomitant]
  14. NORVASC [Concomitant]
  15. ACETAMINOPHEN [Concomitant]
  16. POTASSIUM (POTASSIUM) [Concomitant]
  17. PREDNISONE TAB [Concomitant]
  18. COLACE (DOCUSATE SODIUM) [Concomitant]
  19. DITROPAN [Concomitant]
  20. FLOMAX [Concomitant]
  21. OXYCONTIN [Concomitant]

REACTIONS (10)
  - ASTHENIA [None]
  - BALANCE DISORDER [None]
  - CONDITION AGGRAVATED [None]
  - DIZZINESS [None]
  - DRUG DOSE OMISSION [None]
  - GAIT DISTURBANCE [None]
  - INCONTINENCE [None]
  - LYMPHOCYTE COUNT DECREASED [None]
  - MICTURITION URGENCY [None]
  - RHEUMATOID ARTHRITIS [None]
